FAERS Safety Report 23447218 (Version 1)
Quarter: 2024Q1

REPORT INFORMATION
  Report Type: Spontaneous
  Country: US (occurrence: US)
  Receive Date: 20240126
  Receipt Date: 20240126
  Transmission Date: 20240409
  Serious: Yes (Death, Life-Threatening, Hospitalization, Other)
  Sender: FDA-Public Use
  Company Number: US-009507513-2401USA012744

PATIENT
  Sex: Male

DRUGS (2)
  1. KEYTRUDA [Suspect]
     Active Substance: PEMBROLIZUMAB
     Indication: Pancreatic carcinoma
     Dosage: UNK
     Dates: end: 20231101
  2. MEGESTROL [Concomitant]
     Active Substance: MEGESTROL
     Indication: Increased appetite
     Dosage: UNK

REACTIONS (3)
  - Cellulitis [Fatal]
  - Decubitus ulcer [Fatal]
  - Decreased appetite [Unknown]

NARRATIVE: CASE EVENT DATE: 20230101
